FAERS Safety Report 23281507 (Version 5)
Quarter: 2024Q1

REPORT INFORMATION
  Report Type: Spontaneous
  Country: US (occurrence: US)
  Receive Date: 20231211
  Receipt Date: 20240316
  Transmission Date: 20240410
  Serious: No
  Sender: FDA-Public Use
  Company Number: US-GLAXOSMITHKLINE-US2023AMR171919

PATIENT
  Sex: Female

DRUGS (2)
  1. ZEJULA [Suspect]
     Active Substance: NIRAPARIB
     Indication: Ovarian cancer
     Dosage: 200 MG, QD
  2. METOPROLOL [Concomitant]
     Active Substance: METOPROLOL
     Indication: Product used for unknown indication
     Dosage: UNK

REACTIONS (13)
  - Constipation [Recovering/Resolving]
  - Nausea [Unknown]
  - Asthenia [Unknown]
  - Blood pressure decreased [Not Recovered/Not Resolved]
  - Hypotension [Unknown]
  - Ventricular extrasystoles [Unknown]
  - Renal disorder [Unknown]
  - Gastrooesophageal reflux disease [Unknown]
  - Skin irritation [Unknown]
  - Flatulence [Unknown]
  - Cyst [Unknown]
  - Blood pressure fluctuation [Unknown]
  - Cardiac disorder [Unknown]
